FAERS Safety Report 16980904 (Version 2)
Quarter: 2020Q1

REPORT INFORMATION
  Report Type: Spontaneous
  Country: US (occurrence: US)
  Receive Date: 20191031
  Receipt Date: 20200310
  Transmission Date: 20200409
  Serious: No
  Sender: FDA-Public Use
  Company Number: US-FARMAPROD-201909-1459

PATIENT
  Age: 70 Year
  Sex: Female

DRUGS (7)
  1. XIIDRA [Concomitant]
     Active Substance: LIFITEGRAST
     Dosage: 5% DROPERETTE
  2. OXERVATE [Suspect]
     Active Substance: CENEGERMIN-BKBJ
     Indication: NEUROTROPHIC KERATOPATHY
     Route: 047
     Dates: start: 20190420, end: 201909
  3. THERATEARS [Concomitant]
     Active Substance: CARBOXYMETHYLCELLULOSE SODIUM
     Dosage: 0.25% DROPERETTE
  4. RESTASIS [Concomitant]
     Active Substance: CYCLOSPORINE
     Indication: DRY EYE
     Dosage: 0.05% DROPERETTE
  5. AUTOLOGOUS SERUM [Concomitant]
     Active Substance: HUMAN SERUM, NORMAL
     Indication: DRY EYE
     Dosage: 1 DROP 4-6 TIMES A DAY
     Dates: start: 20160425
  6. ARTIFICIAL TEARS [Concomitant]
     Active Substance: GLYCERIN\HYPROMELLOSES\POLYETHYLENE GLYCOL 400
     Indication: DRY EYE
  7. AZASITE [Concomitant]
     Active Substance: AZITHROMYCIN MONOHYDRATE

REACTIONS (2)
  - Fall [Unknown]
  - Malaise [Unknown]

NARRATIVE: CASE EVENT DATE: 20190915
